FAERS Safety Report 9781154 (Version 1)
Quarter: 2013Q4

REPORT INFORMATION
  Report Type: Spontaneous
  Country: None (occurrence: None)
  Receive Date: 20131223
  Receipt Date: 20131223
  Transmission Date: 20140711
  Serious: Yes (Other)
  Sender: FDA-Public Use
  Company Number: None

PATIENT
  Age: 32 Year
  Sex: Female
  Weight: 58.97 kg

DRUGS (1)
  1. YAZ BAYER [Suspect]
     Indication: CONTRACEPTION
     Dosage: 1 PILL DAILY
     Route: 048
     Dates: start: 20070115, end: 20120815

REACTIONS (2)
  - Weight increased [None]
  - Fatigue [None]
